FAERS Safety Report 7349179-2 (Version None)
Quarter: 2011Q1

REPORT INFORMATION
  Report Type: 
  Country: None (occurrence: None)
  Receive Date: 20110314
  Receipt Date: 20110303
  Transmission Date: 20110831
  Serious: Yes (Hospitalization)
  Sender: FDA-Public Use
  Company Number: DE-AMGEN-DEUCT2011009578

PATIENT
  Age: 75 Year
  Sex: Female
  Weight: 73 kg

DRUGS (5)
  1. ENBREL [Suspect]
     Indication: RHEUMATOID ARTHRITIS
     Dosage: 25 MG, EVERY 4 DAYS
     Route: 058
     Dates: start: 20070907
  2. DIOVANE [Concomitant]
     Indication: HYPERTENSION
     Dosage: UNK
  3. ACTRAPID                           /00030501/ [Concomitant]
     Indication: DIABETES MELLITUS
     Dosage: 30 IU, 1X/DAY
     Route: 058
     Dates: start: 20050101
  4. HYDROMORPHONE HCL [Concomitant]
     Indication: PAIN
     Dosage: 32 MG, UNK
     Route: 048
     Dates: start: 20090601
  5. DECORTIN [Concomitant]
     Indication: RHEUMATOID ARTHRITIS
     Dosage: 5 MG, 1X/DAY
     Route: 048
     Dates: start: 20000101

REACTIONS (3)
  - PLEURISY [None]
  - PRURITUS [None]
  - PNEUMONIA [None]
